FAERS Safety Report 19477353 (Version 1)
Quarter: 2021Q2

REPORT INFORMATION
  Report Type: Spontaneous
  Country: US (occurrence: US)
  Receive Date: 20210630
  Receipt Date: 20210630
  Transmission Date: 20210717
  Serious: Yes (Hospitalization)
  Sender: FDA-Public Use
  Company Number: None

PATIENT
  Age: 60 Year
  Sex: Female
  Weight: 86.5 kg

DRUGS (13)
  1. BACTROBAN 2% OINTMENT [Concomitant]
  2. ONCOLOGY MOUTHWASH [Concomitant]
  3. DECADRON [Concomitant]
     Active Substance: DEXAMETHASONE
  4. ZOFRAN [Concomitant]
     Active Substance: ONDANSETRON HYDROCHLORIDE
  5. TOPROL XL [Concomitant]
     Active Substance: METOPROLOL SUCCINATE
     Dates: end: 20210610
  6. CAMPTOSAR [Suspect]
     Active Substance: IRINOTECAN HYDROCHLORIDE
     Dates: end: 20210610
  7. MELATONIN 1 MG TAB [Concomitant]
  8. 5?FLUOROURACIL (5?FU) [Suspect]
     Active Substance: FLUOROURACIL
     Dates: end: 20210610
  9. TYLENOL [Suspect]
     Active Substance: ACETAMINOPHEN
  10. ZESTRIL [Concomitant]
     Active Substance: LISINOPRIL
  11. CAMPAZINE 10 MG [Concomitant]
  12. LEUCOVORIN CALCIUM. [Suspect]
     Active Substance: LEUCOVORIN CALCIUM
     Dates: end: 20210610
  13. ELOXATIN [Suspect]
     Active Substance: OXALIPLATIN
     Dates: end: 20210610

REACTIONS (2)
  - Muscle spasms [None]
  - Back pain [None]

NARRATIVE: CASE EVENT DATE: 20210624
